FAERS Safety Report 4875673-X (Version None)
Quarter: 2006Q1

REPORT INFORMATION
  Report Type: 
  Country: None (occurrence: None)
  Receive Date: 20060105
  Receipt Date: 20051220
  Transmission Date: 20060701
  Serious: Yes (Hospitalization)
  Sender: FDA-Public Use
  Company Number: DSA_27505_2005

PATIENT
  Age: 21 Year
  Sex: Female

DRUGS (1)
  1. LORAZEPAM [Suspect]
     Dosage: 25 MG ONCE PO
     Route: 048
     Dates: start: 20051203, end: 20051203

REACTIONS (3)
  - INTENTIONAL OVERDOSE [None]
  - SUICIDE ATTEMPT [None]
  - TACHYCARDIA [None]
